FAERS Safety Report 15186482 (Version 2)
Quarter: 2019Q1

REPORT INFORMATION
  Report Type: Report from Study
  Country: US (occurrence: US)
  Receive Date: 20180723
  Receipt Date: 20190130
  Transmission Date: 20190417
  Serious: No
  Sender: FDA-Public Use
  Company Number: US-EXELIXIS-CABO-18012010

PATIENT
  Sex: Female

DRUGS (9)
  1. XGEVA [Concomitant]
     Active Substance: DENOSUMAB
  2. METAMUCIL [Concomitant]
     Active Substance: PLANTAGO SEED
  3. ALEVE [Concomitant]
     Active Substance: NAPROXEN SODIUM
  4. COMETRIQ [Suspect]
     Active Substance: CABOZANTINIB S-MALATE
     Indication: THYROID CANCER
     Dosage: 140 MG, QD
     Route: 048
     Dates: start: 20171221, end: 201804
  5. AMLODIPINE [Concomitant]
     Active Substance: AMLODIPINE BESYLATE
  6. COMETRIQ [Suspect]
     Active Substance: CABOZANTINIB S-MALATE
     Dosage: 80 MG, QD FOR 21 DAYS ON AND 7 DAYS OFF
     Route: 048
     Dates: start: 2018, end: 2018
  7. SYNTHROID [Concomitant]
     Active Substance: LEVOTHYROXINE SODIUM
  8. COMETRIQ [Suspect]
     Active Substance: CABOZANTINIB S-MALATE
     Indication: MALIGNANT MELANOMA
     Dosage: 80 MG, QD
     Route: 048
     Dates: start: 2018, end: 2018
  9. OMEGA 3 [Concomitant]
     Active Substance: OMEGA-3 FATTY ACIDS

REACTIONS (2)
  - Nasal dryness [Unknown]
  - Nasal ulcer [Unknown]
